FAERS Safety Report 10160342 (Version 2)
Quarter: 2014Q2

REPORT INFORMATION
  Report Type: Spontaneous
  Country: FR (occurrence: FR)
  Receive Date: 20140508
  Receipt Date: 20140508
  Transmission Date: 20141212
  Serious: Yes (Other)
  Sender: FDA-Public Use
  Company Number: FR-ELI_LILLY_AND_COMPANY-FR201402004644

PATIENT
  Age: 70 Year
  Sex: Male
  Weight: 67 kg

DRUGS (4)
  1. CIALIS [Suspect]
     Indication: ERECTILE DYSFUNCTION
     Dosage: 5 MG, QD
     Route: 048
     Dates: start: 20131109, end: 20131112
  2. PARIET [Concomitant]
     Indication: GASTROOESOPHAGEAL REFLUX DISEASE
     Dosage: 1 DF, QD
     Route: 048
     Dates: start: 2010
  3. UVEDOSE [Concomitant]
     Indication: OSTEOARTHRITIS
  4. PARACETAMOL [Concomitant]
     Dosage: 3 DF, QD
     Route: 048
     Dates: start: 2013

REACTIONS (6)
  - Priapism [Recovered/Resolved]
  - Flushing [Unknown]
  - Hypertension [Unknown]
  - Headache [Unknown]
  - Vision blurred [Unknown]
  - Tinnitus [Unknown]
